FAERS Safety Report 23404758 (Version 2)
Quarter: 2024Q1

REPORT INFORMATION
  Report Type: Report from Study
  Country: IE (occurrence: IE)
  Receive Date: 20240116
  Receipt Date: 20240124
  Transmission Date: 20240410
  Serious: Yes (Other)
  Sender: FDA-Public Use
  Company Number: IE-Merck Healthcare KGaA-2024001822

PATIENT
  Age: 50 Year
  Sex: Female

DRUGS (2)
  1. MAVENCLAD [Suspect]
     Active Substance: CLADRIBINE
     Indication: Relapsing-remitting multiple sclerosis
     Dosage: YEAR ONE WEEK ONE THERAPY AT A DOSE OF 2 DF ON DAYS 1 TO 2 AND 1 DF ON DAYS 3 TO 5.
     Route: 048
     Dates: start: 20230109
  2. MAVENCLAD [Suspect]
     Active Substance: CLADRIBINE
     Dosage: YEAR ONE WEEK FIVE THERAPY AT A DOSE OF 2 DF ON DAYS 1 TO 2 AND 1 DF ON DAYS 3 TO 5.
     Route: 048
     Dates: start: 20230206

REACTIONS (1)
  - Lower respiratory tract infection [Recovered/Resolved]

NARRATIVE: CASE EVENT DATE: 20240101
